FAERS Safety Report 24383564 (Version 2)
Quarter: 2024Q4

REPORT INFORMATION
  Report Type: Spontaneous
  Country: JP (occurrence: JP)
  Receive Date: 20241001
  Receipt Date: 20241025
  Transmission Date: 20250114
  Serious: No
  Sender: CELLTRION
  Company Number: JP-CELLTRION INC.-2024JP023002

PATIENT

DRUGS (2)
  1. TRASTUZUMAB [Suspect]
     Active Substance: TRASTUZUMAB
     Indication: Breast cancer recurrent
     Dosage: UNK
     Route: 041
     Dates: start: 20240905, end: 20240905
  2. FULVESTRANT [Suspect]
     Active Substance: FULVESTRANT
     Indication: Product used for unknown indication
     Route: 065

REACTIONS (3)
  - Ocular hyperaemia [Recovered/Resolved]
  - Skin exfoliation [Recovered/Resolved]
  - Erythema [Recovered/Resolved]

NARRATIVE: CASE EVENT DATE: 20240910
